FAERS Safety Report 20461664 (Version 1)
Quarter: 2022Q1

REPORT INFORMATION
  Report Type: Spontaneous
  Country: US (occurrence: None)
  Receive Date: 20220211
  Receipt Date: 20220211
  Transmission Date: 20220423
  Serious: No
  Sender: FDA-Public Use
  Company Number: None

PATIENT
  Age: 60 Year
  Sex: Male
  Weight: 58.5 kg

DRUGS (1)
  1. PACLITAXEL [Suspect]
     Active Substance: PACLITAXEL
     Indication: Lung cancer metastatic
     Dosage: OTHER FREQUENCY : ONE TIME;?
     Route: 042
     Dates: start: 20220210, end: 20220210

REACTIONS (4)
  - Flushing [None]
  - Infusion related reaction [None]
  - Respiration abnormal [None]
  - Feeling hot [None]

NARRATIVE: CASE EVENT DATE: 20220210
